FAERS Safety Report 17978983 (Version 1)
Quarter: 2020Q3

REPORT INFORMATION
  Report Type: Spontaneous
  Country: US (occurrence: US)
  Receive Date: 20200703
  Receipt Date: 20200703
  Transmission Date: 20201103
  Serious: Yes (Other)
  Sender: FDA-Public Use
  Company Number: US-TEVA-2020-US-1794499

PATIENT
  Age: 82 Year
  Sex: Female

DRUGS (3)
  1. TRAZODONE HYDROCHLORIDE. [Suspect]
     Active Substance: TRAZODONE HYDROCHLORIDE
     Indication: INSOMNIA
     Dosage: TAKE AN HOUR BEFORE BEDTIME
     Route: 065
     Dates: start: 202002
  2. TRAZODONE HYDROCHLORIDE. [Suspect]
     Active Substance: TRAZODONE HYDROCHLORIDE
     Route: 065
     Dates: start: 202004
  3. TRAZODONE HYDROCHLORIDE. [Suspect]
     Active Substance: TRAZODONE HYDROCHLORIDE
     Route: 065
     Dates: start: 202006

REACTIONS (3)
  - Hallucination, visual [Not Recovered/Not Resolved]
  - Therapeutic product effect incomplete [Unknown]
  - Panic attack [Not Recovered/Not Resolved]

NARRATIVE: CASE EVENT DATE: 2020
